FAERS Safety Report 10153357 (Version 1)
Quarter: 2014Q2

REPORT INFORMATION
  Report Type: Report from Study
  Country: US (occurrence: US)
  Receive Date: 20140505
  Receipt Date: 20140505
  Transmission Date: 20141212
  Serious: Yes (Other)
  Sender: FDA-Public Use
  Company Number: US-ELI_LILLY_AND_COMPANY-US201404009960

PATIENT
  Age: 76 Year
  Sex: Female

DRUGS (22)
  1. LISPRO REGLISPRO [Suspect]
     Indication: TYPE 1 DIABETES MELLITUS
     Route: 058
  2. HUMULIN NPH [Suspect]
     Indication: TYPE 1 DIABETES MELLITUS
     Route: 065
  3. HUMULIN BUFFERED REGULAR [Suspect]
     Indication: TYPE 1 DIABETES MELLITUS
  4. TERIPARATIDE [Concomitant]
     Indication: OSTEOPOROSIS POSTMENOPAUSAL
     Dosage: UNK, QD
     Dates: start: 201306
  5. FUROSEMIDE [Concomitant]
     Dosage: 20 MG, UNK
  6. AMLODIPINE [Concomitant]
  7. OCUVITE                            /01053801/ [Concomitant]
  8. CITRACAL                           /00751520/ [Concomitant]
  9. ESCITALOPRAM [Concomitant]
  10. EZETIMIBE [Concomitant]
  11. FLONASE [Concomitant]
  12. OSTEO BI-FLEX [Concomitant]
  13. LOSARTAN [Concomitant]
  14. MAGNESIUM [Concomitant]
  15. CRANTRATE [Concomitant]
  16. OMEPRAZOLE [Concomitant]
  17. LYRICA [Concomitant]
  18. TRAMADOL [Concomitant]
  19. TRAZODONE [Concomitant]
  20. VITAMIN D                          /00107901/ [Concomitant]
  21. FLORAJEN 3 [Concomitant]
  22. OXYBUTYNIN [Concomitant]

REACTIONS (6)
  - Ischaemic stroke [Recovered/Resolved with Sequelae]
  - Blood glucose decreased [Unknown]
  - Fall [Unknown]
  - Fall [Unknown]
  - Amnesia [Not Recovered/Not Resolved]
  - Concussion [Unknown]
